FAERS Safety Report 18339012 (Version 4)
Quarter: 2021Q2

REPORT INFORMATION
  Report Type: Spontaneous
  Country: US (occurrence: US)
  Receive Date: 20201002
  Receipt Date: 20210505
  Transmission Date: 20210717
  Serious: Yes (Other)
  Sender: FDA-Public Use
  Company Number: US-PFIZER INC-2020359165

PATIENT
  Age: 57 Year
  Sex: Female

DRUGS (2)
  1. FRAGMIN [Suspect]
     Active Substance: DALTEPARIN SODIUM
     Dosage: 0.6 ML, DAILY (INJECT 0.6 ML (15,000 UNITS))
     Route: 058
     Dates: start: 20200921
  2. FRAGMIN [Suspect]
     Active Substance: DALTEPARIN SODIUM
     Dosage: UNK, ALTERNATE DAY (TAKING EVERY OTHER DAY)

REACTIONS (2)
  - Intentional product misuse [Unknown]
  - Neoplasm malignant [Unknown]
